FAERS Safety Report 20839608 (Version 2)
Quarter: 2022Q2

REPORT INFORMATION
  Report Type: Spontaneous
  Country: BR (occurrence: None)
  Receive Date: 20220517
  Receipt Date: 20220603
  Transmission Date: 20220720
  Serious: Yes (Other)
  Sender: FDA-Public Use
  Company Number: 2022A180456

PATIENT
  Age: 51 Year
  Sex: Female

DRUGS (1)
  1. SYMBICORT [Suspect]
     Active Substance: BUDESONIDE\FORMOTEROL FUMARATE DIHYDRATE
     Indication: Asthma
     Dosage: 160/4.5 MCG, A DOSE OR TWO DOSES, UNKNOWN UNKNOWN
     Route: 055
     Dates: start: 2019

REACTIONS (3)
  - Asthmatic crisis [Recovered/Resolved]
  - Product administration error [Unknown]
  - Device delivery system issue [Unknown]
